FAERS Safety Report 17588267 (Version 7)
Quarter: 2022Q1

REPORT INFORMATION
  Report Type: Report from Study
  Country: US (occurrence: US)
  Receive Date: 20200326
  Receipt Date: 20220211
  Transmission Date: 20220423
  Serious: Yes (Hospitalization)
  Sender: FDA-Public Use
  Company Number: NVSC2020US084522

PATIENT
  Age: 19 Year
  Sex: Male

DRUGS (14)
  1. RUXOLITINIB [Suspect]
     Active Substance: RUXOLITINIB
     Indication: Acute lymphocytic leukaemia
     Dosage: 105 MG, BID
     Route: 048
     Dates: start: 20190218, end: 20190304
  2. RUXOLITINIB [Suspect]
     Active Substance: RUXOLITINIB
     Dosage: 105 MG, BID
     Route: 048
     Dates: start: 20190325, end: 20190408
  3. RUXOLITINIB [Suspect]
     Active Substance: RUXOLITINIB
     Dosage: 105 MG, BID
     Route: 048
     Dates: start: 20190430, end: 20190514
  4. RUXOLITINIB [Suspect]
     Active Substance: RUXOLITINIB
     Dosage: 105 MG, BID
     Route: 048
     Dates: start: 20190618, end: 20190701
  5. RUXOLITINIB [Suspect]
     Active Substance: RUXOLITINIB
     Dosage: 110 MG, BID
     Route: 048
     Dates: start: 20190722
  6. PREDNISONE [Suspect]
     Active Substance: PREDNISONE
     Indication: Acute lymphocytic leukaemia
     Dosage: 4.6 MILLIGRAM
     Route: 048
     Dates: start: 20200309, end: 20200309
  7. VINCRISTINE [Suspect]
     Active Substance: VINCRISTINE
     Indication: Acute lymphocytic leukaemia
     Dosage: 2 MG
     Route: 042
     Dates: start: 20200309, end: 20200309
  8. VINCRISTINE [Suspect]
     Active Substance: VINCRISTINE
     Dosage: 2 MILLIGRAM
     Route: 042
     Dates: start: 20190218
  9. MERCAPTOPURINE [Suspect]
     Active Substance: MERCAPTOPURINE
     Indication: Acute lymphocytic leukaemia
     Dosage: UNK
     Route: 048
     Dates: start: 20190218
  10. KYTRIL [Concomitant]
     Active Substance: GRANISETRON HYDROCHLORIDE
     Indication: Nausea
     Dosage: 1 MILLIGRAM, PRN
     Route: 048
     Dates: start: 20190311
  11. HYDROXYZINE [Concomitant]
     Active Substance: HYDROXYZINE HYDROCHLORIDE
     Indication: Nausea
     Dosage: 25 MILLIGRAM, PRN
     Route: 048
     Dates: start: 20190218
  12. HYDROXYZINE [Concomitant]
     Active Substance: HYDROXYZINE HYDROCHLORIDE
     Indication: Vomiting
  13. BACTRIM DS [Concomitant]
     Active Substance: SULFAMETHOXAZOLE\TRIMETHOPRIM
     Indication: Prophylaxis
     Dosage: 800/160 MG, BID
     Route: 048
     Dates: start: 20190316
  14. MOTRIN [Concomitant]
     Active Substance: IBUPROFEN
     Indication: Back pain
     Dosage: 600 MG, SINGLE
     Route: 048
     Dates: start: 20190316

REACTIONS (1)
  - Anaemia [Recovered/Resolved]

NARRATIVE: CASE EVENT DATE: 20200316
